FAERS Safety Report 9249279 (Version 2)
Quarter: 2013Q2

REPORT INFORMATION
  Report Type: Spontaneous
  Country: ES (occurrence: ES)
  Receive Date: 20130423
  Receipt Date: 20130506
  Transmission Date: 20140414
  Serious: Yes (Death)
  Sender: FDA-Public Use
  Company Number: ES-BRISTOL-MYERS SQUIBB COMPANY-18740258

PATIENT
  Age: 60 Year
  Sex: Female

DRUGS (3)
  1. YERVOY [Suspect]
  2. DTIC [Suspect]
  3. INTERFERON [Suspect]

REACTIONS (3)
  - Hepatitis fulminant [Fatal]
  - Malaise [Unknown]
  - Abdominal pain [Unknown]
